FAERS Safety Report 10235548 (Version 1)
Quarter: 2014Q2

REPORT INFORMATION
  Report Type: Spontaneous
  Country: FR (occurrence: FR)
  Receive Date: 20140613
  Receipt Date: 20140613
  Transmission Date: 20141212
  Serious: Yes (Hospitalization, Other)
  Sender: FDA-Public Use
  Company Number: PHHY2014FR070013

PATIENT
  Age: 67 Year
  Sex: Female

DRUGS (16)
  1. CYTARABINE EBEWE [Suspect]
     Indication: PRODUCT USED FOR UNKNOWN INDICATION
     Dosage: 3560 G, ONCE/SINGLE
     Route: 042
     Dates: start: 20140129
  2. DEXAMETHASONE [Suspect]
     Indication: PRODUCT USED FOR UNKNOWN INDICATION
     Dosage: 40 MG, UNK
     Route: 065
     Dates: start: 20140128
  3. DEXAMETHASONE [Suspect]
     Dosage: 40 MG, UNK
     Dates: start: 20140129
  4. DEXAMETHASONE [Suspect]
     Dosage: 40 MG, UNK
     Dates: start: 20140130
  5. DEXAMETHASONE [Suspect]
     Dosage: 40 MG, UNK
     Dates: start: 20140131
  6. CISPLATINE MYLAN [Suspect]
     Indication: PRODUCT USED FOR UNKNOWN INDICATION
     Dosage: 178 MG, ONCE/SINGLE
     Route: 042
     Dates: start: 20140128
  7. MABTHERA [Suspect]
     Indication: PRODUCT USED FOR UNKNOWN INDICATION
     Dosage: 667.5 MG, ONCE/SINGLE
     Route: 042
     Dates: start: 20140127
  8. LODOZ [Concomitant]
     Indication: PRODUCT USED FOR UNKNOWN INDICATION
     Dosage: 1 DF, QD
     Route: 048
  9. TAHOR [Concomitant]
     Indication: PRODUCT USED FOR UNKNOWN INDICATION
     Dosage: 20 MG, QD
     Route: 048
  10. LOVENOX [Concomitant]
     Indication: DEEP VEIN THROMBOSIS
     Dosage: 6000 IU, BID
     Route: 058
     Dates: start: 20140127, end: 20140206
  11. VALACICLOVIR BLUEFISH [Concomitant]
     Indication: PRODUCT USED FOR UNKNOWN INDICATION
     Dosage: 500 MG, BID
     Route: 048
     Dates: start: 20140127
  12. EUPANTOL [Concomitant]
     Indication: PRODUCT USED FOR UNKNOWN INDICATION
     Dosage: 20 MG, QD
     Route: 048
  13. GRANOCYTE [Concomitant]
     Indication: PRODUCT USED FOR UNKNOWN INDICATION
     Route: 065
     Dates: start: 20140202, end: 20140208
  14. ATARAX [Concomitant]
     Indication: ANXIETY
     Dosage: UNK UKN, PRN
     Route: 065
  15. PRIMPERAN [Concomitant]
     Indication: PRODUCT USED FOR UNKNOWN INDICATION
     Dosage: UNK UKN, PRN
     Route: 065
  16. ZOPHREN [Concomitant]
     Indication: PRODUCT USED FOR UNKNOWN INDICATION
     Dosage: UNK UKN, PRN
     Route: 065

REACTIONS (1)
  - Renal failure acute [Not Recovered/Not Resolved]
